FAERS Safety Report 5393073-3 (Version None)
Quarter: 2007Q3

REPORT INFORMATION
  Report Type: 
  Country: None (occurrence: None)
  Receive Date: 20070719
  Receipt Date: 20070709
  Transmission Date: 20080115
  Serious: Yes (Hospitalization)
  Sender: FDA-Public Use
  Company Number: 2006-147115-NL

PATIENT
  Age: 34 Year
  Sex: Female

DRUGS (7)
  1. CHORIONIC GONADOTROPIN [Suspect]
     Indication: IN VITRO FERTILISATION
     Dosage: 10000 IU; 500 IU; 5000 IU; 5000 IU
     Dates: start: 20060808
  2. CHORIONIC GONADOTROPIN [Suspect]
     Indication: IN VITRO FERTILISATION
     Dosage: 10000 IU; 500 IU; 5000 IU; 5000 IU
     Dates: start: 20060810
  3. CHORIONIC GONADOTROPIN [Suspect]
     Indication: IN VITRO FERTILISATION
     Dosage: 10000 IU; 500 IU; 5000 IU; 5000 IU
     Dates: start: 20060812
  4. CHORIONIC GONADOTROPIN [Suspect]
     Indication: IN VITRO FERTILISATION
     Dosage: 10000 IU; 500 IU; 5000 IU; 5000 IU
     Dates: start: 20060818
  5. FOLLITROPIN BETA [Suspect]
     Dosage: DF;
     Dates: start: 20060731, end: 20060808
  6. PROGESTERONE [Concomitant]
  7. GANIRELIX ACETATE INJECTION [Concomitant]

REACTIONS (5)
  - FLATULENCE [None]
  - HYDROTHORAX [None]
  - OVARIAN HYPERSTIMULATION SYNDROME [None]
  - PLEURAL EFFUSION [None]
  - PREGNANCY [None]
